FAERS Safety Report 16322116 (Version 1)
Quarter: 2019Q2

REPORT INFORMATION
  Report Type: Spontaneous
  Country: US (occurrence: US)
  Receive Date: 20190516
  Receipt Date: 20190516
  Transmission Date: 20190711
  Serious: Yes (Hospitalization)
  Sender: FDA-Public Use
  Company Number: US-TEVA-2019-US-1049566

PATIENT
  Age: 33 Year
  Sex: Male

DRUGS (1)
  1. LOPERAMIDE [Suspect]
     Active Substance: LOPERAMIDE
     Indication: PAIN
     Dosage: MORE THAN 100MG
     Route: 065

REACTIONS (8)
  - Torsade de pointes [Recovered/Resolved]
  - Atrioventricular block first degree [Recovered/Resolved]
  - Arrhythmia [Unknown]
  - Sinus bradycardia [Recovered/Resolved]
  - Ventricular hypokinesia [Recovered/Resolved]
  - Toxicity to various agents [Recovered/Resolved]
  - Off label use [Unknown]
  - Cardiac arrest [Recovered/Resolved]
